FAERS Safety Report 5385265-4 (Version None)
Quarter: 2007Q3

REPORT INFORMATION
  Report Type: 
  Country: None (occurrence: None)
  Receive Date: 20070709
  Receipt Date: 20070629
  Transmission Date: 20080115
  Serious: Yes (Other)
  Sender: FDA-Public Use
  Company Number: CHPA2007US06977

PATIENT
  Age: 65 Year
  Sex: Female
  Weight: 72.1 kg

DRUGS (2)
  1. EXCEDRIN (MIGRAINE) [Suspect]
     Indication: HEADACHE
     Dosage: 3 DF, TID, ORAL
     Route: 048
  2. EXCEDRIN (MIGRAINE) [Suspect]
     Indication: HEADACHE
     Dates: start: 19940101

REACTIONS (3)
  - DRUG DEPENDENCE [None]
  - DUODENAL ULCER HAEMORRHAGE [None]
  - OVERDOSE [None]
